FAERS Safety Report 7266960-9 (Version None)
Quarter: 2011Q1

REPORT INFORMATION
  Report Type: 
  Country: None (occurrence: None)
  Receive Date: 20110201
  Receipt Date: 20110124
  Transmission Date: 20110831
  Serious: Yes (Hospitalization)
  Sender: FDA-Public Use
  Company Number: SE-BRISTOL-MYERS SQUIBB COMPANY-15508732

PATIENT
  Age: 55 Year
  Sex: Male

DRUGS (4)
  1. ACETAMINOPHEN [Concomitant]
  2. IMATINIB MESYLATE [Suspect]
     Indication: CHRONIC MYELOID LEUKAEMIA
     Route: 048
     Dates: start: 20100909, end: 20101118
  3. ALLOPURINOL [Suspect]
     Indication: CHRONIC MYELOID LEUKAEMIA
  4. HYDREA [Suspect]
     Indication: CHRONIC MYELOID LEUKAEMIA
     Route: 048
     Dates: start: 20100826, end: 20101013

REACTIONS (2)
  - INTERSTITIAL LUNG DISEASE [None]
  - WHITE BLOOD CELL COUNT DECREASED [None]
